FAERS Safety Report 21248113 (Version 1)
Quarter: 2022Q3

REPORT INFORMATION
  Report Type: Spontaneous
  Country: US (occurrence: None)
  Receive Date: 20220823
  Receipt Date: 20220823
  Transmission Date: 20221027
  Serious: Yes (Other)
  Sender: FDA-Public Use
  Company Number: None

PATIENT
  Age: 64 Year
  Sex: Female
  Weight: 54 kg

DRUGS (5)
  1. VTAMA [Suspect]
     Active Substance: TAPINAROF
     Indication: Psoriasis
     Dosage: OTHER QUANTITY : 1 1 X DAY;?FREQUENCY : DAILY;?
     Route: 061
     Dates: start: 20220819, end: 20220823
  2. ASPIRIN [Concomitant]
     Active Substance: ASPIRIN
  3. OTEZLA [Concomitant]
     Active Substance: APREMILAST
  4. COENZYME Q10 [Concomitant]
     Active Substance: DIETARY SUPPLEMENT\UBIDECARENONE
  5. VITAMIN D NOS [Concomitant]
     Active Substance: VITAMIN D NOS

REACTIONS (3)
  - Rash erythematous [None]
  - Pain [None]
  - Dermatitis [None]

NARRATIVE: CASE EVENT DATE: 20220822
